FAERS Safety Report 19500201 (Version 1)
Quarter: 2021Q3

REPORT INFORMATION
  Report Type: Spontaneous
  Country: DE (occurrence: DE)
  Receive Date: 20210707
  Receipt Date: 20210707
  Transmission Date: 20211014
  Serious: Yes (Hospitalization, Other)
  Sender: FDA-Public Use
  Company Number: DE-SA-2021SA214592

PATIENT
  Age: 68 Year
  Sex: Male
  Weight: 92 kg

DRUGS (11)
  1. LEVEMIR [Concomitant]
     Active Substance: INSULIN DETEMIR
     Dosage: 0?0?0?32, SOLUTION FOR INJECTION / INFUSION LEVEMIR FLEXPEN 100 UNITS/ML
     Route: 058
  2. CARVEDILOL. [Concomitant]
     Active Substance: CARVEDILOL
     Dosage: 6.25 MG, 1?0?1?0, TABLETS
     Route: 048
  3. INSUMAN RAPID [Concomitant]
     Active Substance: INSULIN HUMAN
     Dosage: 30?22?22?0, SOLUTION FOR INJECTION / INFUSION INSUMAN RAPID RAPID 100I.E./ML SOLOSTAR
     Route: 058
  4. VICTOZA [Concomitant]
     Active Substance: LIRAGLUTIDE
     Dosage: 1.2?0?0?0, SOLUTION FOR INJECTION / INFUSION
     Route: 058
  5. EZETIMIBE. [Concomitant]
     Active Substance: EZETIMIBE
     Dosage: 10 MG, 0?0?1?0, TABLETS
     Route: 048
  6. MARCUMAR [Concomitant]
     Active Substance: PHENPROCOUMON
     Dosage: 3 MG, 0?0?2?0, TABLETS
     Route: 048
  7. B12 ANKERMANN [Concomitant]
     Dosage: 1 MG, 1?0?0?0, TABLETS
     Route: 048
  8. LOSARTAN. [Concomitant]
     Active Substance: LOSARTAN
     Dosage: 50 MG, 1?0?0?0, TABLETS
     Route: 048
  9. JARDIANCE [Concomitant]
     Active Substance: EMPAGLIFLOZIN
     Dosage: 10 MG, 1?0?0?0, TABLETS
     Route: 048
  10. PLAVIX [Suspect]
     Active Substance: CLOPIDOGREL BISULFATE
     Dosage: 75 MG, PATIENT DID NOT TAKE TABLETS
     Route: 048
  11. ROSUVASTATIN ARISTO [Concomitant]
     Dosage: 20 MG, 0?0?1?0, TABLETS
     Route: 048

REACTIONS (3)
  - Dyspnoea [Unknown]
  - Angina pectoris [Unknown]
  - Chest discomfort [Unknown]
